FAERS Safety Report 14776790 (Version 1)
Quarter: 2018Q2

REPORT INFORMATION
  Report Type: Spontaneous
  Country: US (occurrence: US)
  Receive Date: 20180419
  Receipt Date: 20180419
  Transmission Date: 20180711
  Serious: Yes (Other)
  Sender: FDA-Public Use
  Company Number: US-CIPLA LTD.-2018US15707

PATIENT

DRUGS (8)
  1. VINCRISTINE [Suspect]
     Active Substance: VINCRISTINE
     Dosage: UNK
     Route: 065
  2. VINBLASTINE [Suspect]
     Active Substance: VINBLASTINE
     Indication: METASTATIC GLIOMA
     Dosage: UNK, WEEKLY
     Route: 065
  3. CCNU [Suspect]
     Active Substance: LOMUSTINE
     Indication: GLIOMA
     Dosage: UNK
     Route: 065
  4. PROCARBAZINE [Suspect]
     Active Substance: PROCARBAZINE
     Indication: GLIOMA
     Dosage: UNK
     Route: 065
  5. CARBOPLATIN. [Suspect]
     Active Substance: CARBOPLATIN
     Indication: METASTATIC GLIOMA
     Dosage: UNK
     Route: 065
  6. VINCRISTINE [Suspect]
     Active Substance: VINCRISTINE
     Indication: METASTATIC GLIOMA
     Dosage: UNK
     Route: 065
  7. TEMOZOLOMIDE. [Suspect]
     Active Substance: TEMOZOLOMIDE
     Indication: METASTATIC GLIOMA
     Dosage: UNK
     Route: 048
  8. THIOGUANINE [Suspect]
     Active Substance: THIOGUANINE
     Indication: GLIOMA
     Dosage: UNK
     Route: 065

REACTIONS (4)
  - Febrile neutropenia [Recovered/Resolved]
  - Mycobacterium chelonae infection [Recovered/Resolved]
  - Sunburn [Unknown]
  - Malignant neoplasm progression [Unknown]
